FAERS Safety Report 7602703-4 (Version None)
Quarter: 2011Q2

REPORT INFORMATION
  Report Type: 
  Country: None (occurrence: None)
  Receive Date: 20110629
  Receipt Date: 20110623
  Transmission Date: 20111010
  Serious: Yes (Death)
  Sender: FDA-Public Use
  Company Number: B0728205A

PATIENT
  Age: 10 Year
  Sex: Female

DRUGS (4)
  1. MELPHALAN HYDROCHLORIDE [Suspect]
     Indication: CHEMOTHERAPY
     Dosage: 50 MG/M2/ PER DAY
  2. THIOTEPA [Suspect]
     Indication: CHEMOTHERAPY
     Dosage: 250 MG/M2 / PER DAY
  3. STEM CELL TRANSPLANT [Concomitant]
  4. MYLERAN [Suspect]
     Indication: CHEMOTHERAPY
     Dosage: 3 MG/KG/ PER DAY

REACTIONS (8)
  - CONVULSION [None]
  - POLYOMAVIRUS-ASSOCIATED NEPHROPATHY [None]
  - HAEMODIALYSIS [None]
  - GENERAL PHYSICAL HEALTH DETERIORATION [None]
  - STEM CELL TRANSPLANT [None]
  - LYMPHOPENIA [None]
  - APNOEIC ATTACK [None]
  - HYPOGAMMAGLOBULINAEMIA [None]
